FAERS Safety Report 14573944 (Version 1)
Quarter: 2018Q1

REPORT INFORMATION
  Report Type: Spontaneous
  Country: US (occurrence: US)
  Receive Date: 20180226
  Receipt Date: 20180226
  Transmission Date: 20180509
  Serious: No
  Sender: FDA-Public Use
  Company Number: US-GE HEALTHCARE LIFE SCIENCES-2018CSU000433

PATIENT
  Age: 80 Year
  Sex: Male
  Weight: 85.2 kg

DRUGS (1)
  1. OMNIPAQUE [Suspect]
     Active Substance: IOHEXOL
     Indication: LYMPHOMA
     Dosage: 120 ML (AT THE RATE OF 2 ML/SEC), SINGLE
     Route: 042
     Dates: start: 20180125, end: 20180125

REACTIONS (2)
  - Erythema [Recovered/Resolved]
  - Swollen tongue [Recovered/Resolved]

NARRATIVE: CASE EVENT DATE: 20180125
